FAERS Safety Report 5183586-1 (Version None)
Quarter: 2006Q4

REPORT INFORMATION
  Report Type: 
  Country: None (occurrence: None)
  Receive Date: 20061220
  Receipt Date: 20060124
  Transmission Date: 20070319
  Serious: No
  Sender: FDA-Public Use
  Company Number: US-GLAXOSMITHKLINE-A0590614A

PATIENT
  Age: 52 Year
  Sex: Female

DRUGS (5)
  1. NICODERM CQ [Suspect]
  2. ASPIRIN [Concomitant]
  3. DIAVAN [Concomitant]
  4. HYDROCHLOROTHIAZIDE [Concomitant]
  5. NORVASC [Concomitant]

REACTIONS (1)
  - HAEMOPTYSIS [None]
